FAERS Safety Report 9513616 (Version 6)
Quarter: 2014Q1

REPORT INFORMATION
  Report Type: Spontaneous
  Country: US (occurrence: US)
  Receive Date: 20130910
  Receipt Date: 20140224
  Transmission Date: 20141002
  Serious: Yes (Hospitalization, Disabling, Other)
  Sender: FDA-Public Use
  Company Number: US-009507513-1309USA003680

PATIENT
  Sex: Female
  Weight: 115.65 kg

DRUGS (8)
  1. FOSAMAX [Suspect]
     Indication: OSTEOPENIA
     Dosage: 70 MG, QW
     Route: 048
     Dates: start: 20031110, end: 20080214
  2. ALENDRONATE SODIUM [Suspect]
     Indication: OSTEOPOROSIS
     Dosage: 70 MG, UNK
     Route: 048
     Dates: start: 20080214, end: 20100810
  3. UBIDECARENONE [Concomitant]
     Indication: PRODUCT USED FOR UNKNOWN INDICATION
     Dosage: UNK, QD
     Dates: start: 1975
  4. VITAMINS (UNSPECIFIED) [Concomitant]
     Indication: ROUTINE HEALTH MAINTENANCE
     Dosage: UNK, QD
     Dates: start: 1975
  5. VITAMIN D (UNSPECIFIED) [Concomitant]
     Indication: ROUTINE HEALTH MAINTENANCE
     Dosage: 1000 IU
     Dates: start: 1975
  6. CALCIUM (UNSPECIFIED) [Concomitant]
     Indication: ROUTINE HEALTH MAINTENANCE
     Dosage: 500 MG, UNK
     Dates: start: 1975
  7. MAGNESIUM (UNSPECIFIED) [Concomitant]
     Indication: ROUTINE HEALTH MAINTENANCE
     Dosage: 500 MG, UNK
     Dates: start: 1975
  8. BENAZEPRIL HYDROCHLORIDE [Concomitant]
     Indication: HYPERTENSION
     Dosage: UNK
     Dates: start: 20010809

REACTIONS (28)
  - Femur fracture [Not Recovered/Not Resolved]
  - Open reduction of fracture [Unknown]
  - Packed red blood cell transfusion [Unknown]
  - Femur fracture [Unknown]
  - Femur fracture [Unknown]
  - Low turnover osteopathy [Not Recovered/Not Resolved]
  - Vitamin D deficiency [Unknown]
  - Fracture nonunion [Unknown]
  - Arthritis [Unknown]
  - Sleep apnoea syndrome [Unknown]
  - Spinal column stenosis [Unknown]
  - Blood cholesterol increased [Unknown]
  - Urinary incontinence [Not Recovered/Not Resolved]
  - Muscle strain [Recovering/Resolving]
  - Venous insufficiency [Not Recovered/Not Resolved]
  - Osteoarthritis [Unknown]
  - Ventricular extrasystoles [Unknown]
  - Malnutrition [Unknown]
  - Foreign body reaction [Unknown]
  - Device failure [Unknown]
  - Influenza like illness [Recovering/Resolving]
  - Vomiting [Recovering/Resolving]
  - Back pain [Not Recovered/Not Resolved]
  - Pain in extremity [Unknown]
  - Headache [Unknown]
  - Erythema [Unknown]
  - Cardiac murmur [Unknown]
  - Anaemia postoperative [Unknown]
